FAERS Safety Report 7601695-1 (Version None)
Quarter: 2011Q3

REPORT INFORMATION
  Report Type: 
  Country: None (occurrence: None)
  Receive Date: 20110711
  Receipt Date: 20110706
  Transmission Date: 20111222
  Serious: Yes (Death, Hospitalization)
  Sender: FDA-Public Use
  Company Number: BR-ASTRAZENECA-2011SE39571

PATIENT
  Age: 88 Year
  Sex: Male

DRUGS (7)
  1. ALOIS [Concomitant]
     Indication: CRYING
     Route: 048
     Dates: start: 20090101
  2. PONDERA [Concomitant]
     Indication: DEPRESSED MOOD
     Route: 048
     Dates: start: 20090101
  3. CASODEX [Suspect]
     Route: 048
     Dates: start: 19940101
  4. ALOIS [Concomitant]
     Indication: DEPRESSED MOOD
     Route: 048
     Dates: start: 20090101
  5. PONDERA [Concomitant]
     Indication: CRYING
     Route: 048
     Dates: start: 20090101
  6. SEROQUEL [Suspect]
     Indication: DEPRESSED MOOD
     Route: 048
     Dates: start: 20090101
  7. SEROQUEL [Suspect]
     Indication: CRYING
     Route: 048
     Dates: start: 20090101

REACTIONS (4)
  - CRYING [None]
  - PNEUMONIA [None]
  - DEPRESSED MOOD [None]
  - URINARY TRACT INFECTION [None]
